FAERS Safety Report 15673437 (Version 1)
Quarter: 2018Q4

REPORT INFORMATION
  Report Type: Spontaneous
  Country: US (occurrence: US)
  Receive Date: 20181129
  Receipt Date: 20181129
  Transmission Date: 20190205
  Serious: No
  Sender: FDA-Public Use
  Company Number: US-AMAG PHARMACEUTICALS, INC.-AMAG201804677

PATIENT
  Age: 64 Year
  Sex: Female
  Weight: 59.41 kg

DRUGS (4)
  1. INTRAROSA [Suspect]
     Active Substance: PRASTERONE
     Indication: ATROPHIC VULVOVAGINITIS
  2. INTRAROSA [Suspect]
     Active Substance: PRASTERONE
     Indication: VULVOVAGINAL BURNING SENSATION
  3. INTRAROSA [Suspect]
     Active Substance: PRASTERONE
     Indication: DYSPAREUNIA
     Dosage: 6.5 MG, QHS
     Route: 067
     Dates: start: 20171211
  4. INTRAROSA [Suspect]
     Active Substance: PRASTERONE
     Indication: VULVOVAGINAL DRYNESS

REACTIONS (3)
  - Underdose [Unknown]
  - Urinary tract infection [Recovered/Resolved]
  - Off label use [Unknown]

NARRATIVE: CASE EVENT DATE: 20171211
